FAERS Safety Report 15035772 (Version 1)
Quarter: 2018Q2

REPORT INFORMATION
  Report Type: Spontaneous
  Country: US (occurrence: US)
  Receive Date: 20180530
  Receipt Date: 20180530
  Transmission Date: 20180711
  Serious: No
  Sender: FDA-Public Use
  Company Number: None

PATIENT
  Age: 27 Year
  Sex: Female

DRUGS (1)
  1. HEPARIN SODINJ 10000/MLPRESERVATIVE FREE [Suspect]
     Active Substance: HEPARIN SODIUM
     Route: 058
     Dates: start: 20180510, end: 20180529

REACTIONS (2)
  - Incorrect dose administered [None]
  - Drug dispensing error [None]

NARRATIVE: CASE EVENT DATE: 20180510
